FAERS Safety Report 6970877-4 (Version None)
Quarter: 2010Q3

REPORT INFORMATION
  Report Type: 
  Country: None (occurrence: None)
  Receive Date: 20100908
  Receipt Date: 20100901
  Transmission Date: 20110219
  Serious: Yes (Hospitalization)
  Sender: FDA-Public Use
  Company Number: B0673050A

PATIENT
  Age: 7 Year
  Sex: Male

DRUGS (2)
  1. CLAVAMOX [Suspect]
     Dosage: 3IUAX PER DAY
     Route: 048
     Dates: start: 20100827
  2. LANSOPRAZOLE [Concomitant]
     Route: 065
     Dates: start: 20100810

REACTIONS (1)
  - HEPATIC FUNCTION ABNORMAL [None]
